FAERS Safety Report 21094655 (Version 2)
Quarter: 2022Q3

REPORT INFORMATION
  Report Type: Spontaneous
  Country: IE (occurrence: IE)
  Receive Date: 20220718
  Receipt Date: 20220809
  Transmission Date: 20221027
  Serious: Yes (Other)
  Sender: FDA-Public Use
  Company Number: None

PATIENT

DRUGS (3)
  1. NORDURINE [Suspect]
     Active Substance: DESMOPRESSIN ACETATE
     Indication: Urinary incontinence
     Dosage: 0.1 MG
     Route: 048
     Dates: start: 202202
  2. NORDURINE [Suspect]
     Active Substance: DESMOPRESSIN ACETATE
     Indication: Constipation
  3. OMESAR [OLMESARTAN MEDOXOMIL] [Concomitant]
     Indication: Hypotension
     Dosage: 20 MG
     Route: 048

REACTIONS (7)
  - Loss of control of legs [Unknown]
  - Headache [Unknown]
  - Dyskinesia [Unknown]
  - Dizziness [Unknown]
  - Vertigo [Unknown]
  - Tremor [Unknown]
  - Confusional state [Unknown]

NARRATIVE: CASE EVENT DATE: 20220523
